FAERS Safety Report 26111924 (Version 1)
Quarter: 2025Q4

REPORT INFORMATION
  Report Type: Spontaneous
  Country: CN (occurrence: CN)
  Receive Date: 20251202
  Receipt Date: 20251202
  Transmission Date: 20260118
  Serious: Yes (Life-Threatening, Hospitalization, Other)
  Sender: FERRING
  Company Number: CN-FERRINGPH-2025FE07030

PATIENT
  Age: 35 Year
  Sex: Female

DRUGS (3)
  1. DINOPROSTONE [Suspect]
     Active Substance: DINOPROSTONE
     Indication: Labour induction
     Dosage: 10 MG, ONCE/SINGLE
     Route: 067
     Dates: start: 20240430, end: 20240501
  2. OXYTOCIN [Suspect]
     Active Substance: OXYTOCIN
     Indication: Labour induction
     Dosage: 2.5 U/500ML NS, STARTED 8 DROPS/MIN AND TITRATED UP
     Route: 041
     Dates: start: 20240430
  3. OXYTOCIN [Suspect]
     Active Substance: OXYTOCIN
     Dosage: 5 U/500ML NS TITRATED TO A MAX. 30 DROPS/MIN
     Route: 041
     Dates: end: 20240430

REACTIONS (6)
  - Postpartum haemorrhage [Recovered/Resolved]
  - Anaphylactoid syndrome of pregnancy [Recovered/Resolved]
  - Disseminated intravascular coagulation [Recovered/Resolved]
  - Shock haemorrhagic [Recovered/Resolved]
  - Myocardial injury [Recovered/Resolved]
  - Uterine hypertonus [Recovered/Resolved]

NARRATIVE: CASE EVENT DATE: 20240501
